FAERS Safety Report 7289910-8 (Version None)
Quarter: 2011Q1

REPORT INFORMATION
  Report Type: 
  Country: None (occurrence: None)
  Receive Date: 20110214
  Receipt Date: 20110201
  Transmission Date: 20110831
  Serious: Yes (Other)
  Sender: FDA-Public Use
  Company Number: GB-ELI_LILLY_AND_COMPANY-GB201102000077

PATIENT
  Age: 57 Year
  Sex: Female
  Weight: 64.7 kg

DRUGS (13)
  1. CO-CARELDOPA [Concomitant]
     Dosage: 7 D/F, DAILY (1/D)
  2. ADCAL-D3 [Concomitant]
     Dosage: 2 D/F, DAILY (1/D)
  3. DOMPERIDONE [Concomitant]
     Dosage: 7 D/F, DAILY (1/D)
  4. LEVOTHYROXINE SODIUM [Concomitant]
     Dosage: 125 UG, DAILY (1/D)
  5. FORTEO [Suspect]
     Indication: OSTEOPOROSIS
     Dosage: 20 UG, UNK
     Route: 058
     Dates: end: 20101222
  6. MIACALCIN [Concomitant]
  7. ROPINIROLE [Concomitant]
     Dosage: 8 MG, DAILY (1/D)
  8. ETORICOXIB [Concomitant]
     Dosage: 90 MG, DAILY (1/D)
  9. FENTANYL [Concomitant]
     Dosage: 12 UG, EVERY HOUR
  10. MIRTAZAPINE [Concomitant]
     Dosage: 30 MG, DAILY (1/D)
  11. OMEPRAZOLE [Concomitant]
     Dosage: 2 D/F, DAILY (1/D)
  12. LORAZEPAM [Concomitant]
     Dosage: 4 D/F, DAILY (1/D)
  13. TRAMADOL HCL [Concomitant]
     Dosage: 3 D/F, DAILY (1/D)

REACTIONS (2)
  - MYALGIA [None]
  - BONE PAIN [None]
